FAERS Safety Report 5988155-9 (Version None)
Quarter: 2008Q4

REPORT INFORMATION
  Report Type: 
  Country: None (occurrence: None)
  Receive Date: 20081208
  Receipt Date: 20081208
  Transmission Date: 20090506
  Serious: Yes (Other)
  Sender: FDA-Public Use
  Company Number: None

PATIENT
  Sex: Male

DRUGS (1)
  1. RITUXIMAB [Suspect]
     Dosage: 375 MG/M2 = 803 MG IV
     Route: 042

REACTIONS (8)
  - ANXIETY [None]
  - BACK PAIN [None]
  - CHILLS [None]
  - INFUSION RELATED REACTION [None]
  - OXYGEN SATURATION DECREASED [None]
  - PARAESTHESIA [None]
  - VOMITING [None]
  - WHEEZING [None]
